FAERS Safety Report 21564431 (Version 1)
Quarter: 2022Q4

REPORT INFORMATION
  Report Type: Report from Study
  Country: US (occurrence: US)
  Receive Date: 20221108
  Receipt Date: 20221108
  Transmission Date: 20230112
  Serious: Yes (Other)
  Sender: FDA-Public Use
  Company Number: US-ABBVIE-4189197

PATIENT
  Age: 61 Year
  Sex: Female

DRUGS (3)
  1. SYNTHROID [Suspect]
     Active Substance: LEVOTHYROXINE SODIUM
     Indication: Product used for unknown indication
     Dosage: 100 MICROGRAM, LAST ADMIN DATE 2022?FORM STRENGTH 88 MICROGRAM
     Route: 048
     Dates: start: 20221021
  2. SYNTHROID [Suspect]
     Active Substance: LEVOTHYROXINE SODIUM
     Indication: Product used for unknown indication
     Dosage: FIRST ADMIN DATE 2022?FORM STRENGTH 88 MICROGRAM
     Route: 048
  3. SYNTHROID [Suspect]
     Active Substance: LEVOTHYROXINE SODIUM
     Indication: Product used for unknown indication
     Dosage: FORM STRENGTH 88 MICROGRAM
     Route: 048
     Dates: start: 202205, end: 202210

REACTIONS (3)
  - Oedema [Unknown]
  - Dyspnoea [Unknown]
  - Abdominal distension [Unknown]

NARRATIVE: CASE EVENT DATE: 20221001
